FAERS Safety Report 10445380 (Version 2)
Quarter: 2014Q3

REPORT INFORMATION
  Report Type: Spontaneous
  Country: US (occurrence: US)
  Receive Date: 20140908
  Receipt Date: 20140908
  Transmission Date: 20150326
  Serious: No
  Sender: FDA-Public Use
  Company Number: US-BRISTOL-MYERS SQUIBB COMPANY-20714333

PATIENT
  Age: 72 Year
  Sex: Female

DRUGS (4)
  1. ABILIFY [Suspect]
     Active Substance: ARIPIPRAZOLE
     Indication: DEPRESSION
     Dosage: TAKING ABILIFY 2.5 MG DAILY BY SPLITTING 5 MG TABLET IN HALF
     Dates: start: 20140501
  2. ABILIFY [Suspect]
     Active Substance: ARIPIPRAZOLE
     Indication: ANXIETY
     Dosage: TAKING ABILIFY 2.5 MG DAILY BY SPLITTING 5 MG TABLET IN HALF
     Dates: start: 20140501
  3. LANSOPRAZOLE. [Concomitant]
     Active Substance: LANSOPRAZOLE
  4. ABILIFY [Suspect]
     Active Substance: ARIPIPRAZOLE
     Indication: AFFECTIVE DISORDER
     Dosage: TAKING ABILIFY 2.5 MG DAILY BY SPLITTING 5 MG TABLET IN HALF
     Dates: start: 20140501

REACTIONS (1)
  - Wrong technique in drug usage process [Unknown]

NARRATIVE: CASE EVENT DATE: 20140501
